FAERS Safety Report 9878364 (Version 1)
Quarter: 2014Q1

REPORT INFORMATION
  Report Type: Spontaneous
  Country: US (occurrence: US)
  Receive Date: 20140206
  Receipt Date: 20140206
  Transmission Date: 20141002
  Serious: No
  Sender: FDA-Public Use
  Company Number: US-ALLERGAN-1310619US

PATIENT
  Age: 6 Decade
  Sex: Female

DRUGS (1)
  1. BOTOX COSMETIC [Suspect]
     Indication: SKIN WRINKLING
     Dosage: 20 UNITS, SINGLE
     Route: 030
     Dates: start: 20130606, end: 20130606

REACTIONS (3)
  - Eye swelling [Unknown]
  - Wrong technique in drug usage process [Unknown]
  - Eyelid ptosis [Unknown]
